FAERS Safety Report 9904189 (Version 6)
Quarter: 2014Q2

REPORT INFORMATION
  Report Type: Report from Study
  Country: CA (occurrence: CA)
  Receive Date: 20140218
  Receipt Date: 20140423
  Transmission Date: 20141212
  Serious: Yes (Hospitalization, Other)
  Sender: FDA-Public Use
  Company Number: CA-ROCHE-1347379

PATIENT
  Age: 52 Year
  Sex: Male

DRUGS (9)
  1. RITUXAN [Suspect]
     Indication: AUTOIMMUNE HAEMOLYTIC ANAEMIA
     Route: 042
     Dates: start: 201009, end: 201104
  2. RITUXAN [Suspect]
     Route: 042
     Dates: start: 201306, end: 201311
  3. RITUXAN [Suspect]
     Route: 042
     Dates: start: 20140320
  4. SEPTRA [Concomitant]
     Indication: PROPHYLAXIS
  5. ACYCLOVIR [Concomitant]
     Indication: PROPHYLAXIS
  6. PREDNISONE [Concomitant]
  7. LASIX [Concomitant]
  8. BENDAMUSTINE [Concomitant]
  9. RITUXAN [Suspect]
     Indication: LYMPHOMA
     Route: 042
     Dates: start: 200906, end: 200911

REACTIONS (6)
  - Pleural effusion [Recovered/Resolved]
  - Autoimmune haemolytic anaemia [Recovering/Resolving]
  - Disease progression [Unknown]
  - Pyrexia [Recovering/Resolving]
  - Cough [Not Recovered/Not Resolved]
  - Off label use [Unknown]
